FAERS Safety Report 12586665 (Version 2)
Quarter: 2016Q3

REPORT INFORMATION
  Report Type: Spontaneous
  Country: US (occurrence: US)
  Receive Date: 20160725
  Receipt Date: 20160825
  Transmission Date: 20161109
  Serious: No
  Sender: FDA-Public Use
  Company Number: US-PFIZER INC-2016340525

PATIENT
  Age: 74 Year
  Sex: Male
  Weight: 101 kg

DRUGS (11)
  1. ADVIL [Suspect]
     Active Substance: IBUPROFEN
     Indication: PAIN IN EXTREMITY
  2. POTASSIUM CHLORIDE. [Concomitant]
     Active Substance: POTASSIUM CHLORIDE
     Dosage: 20
  3. ASPIRIN. [Concomitant]
     Active Substance: ASPIRIN
     Indication: BLOOD VISCOSITY INCREASED
     Dosage: 81 MG, UNK
  4. AMLODIPINE [Concomitant]
     Active Substance: AMLODIPINE BESYLATE
     Indication: BLOOD PRESSURE ABNORMAL
     Dosage: 10 MG, UNK
  5. ENALAPRIL [Concomitant]
     Active Substance: ENALAPRIL
     Indication: BLOOD PRESSURE ABNORMAL
     Dosage: 10 MG, 2X/DAY
  6. FUROSEMIDE. [Concomitant]
     Active Substance: FUROSEMIDE
     Indication: THROMBOSIS PROPHYLAXIS
     Dosage: 80 MG
  7. DIGOXIN. [Concomitant]
     Active Substance: DIGOXIN
     Indication: HEART RATE INCREASED
     Dosage: UNK
  8. METFORMIN [Concomitant]
     Active Substance: METFORMIN HYDROCHLORIDE
     Indication: DIABETES MELLITUS
     Dosage: 500 MG, 2X/DAY
  9. ADVIL [Suspect]
     Active Substance: IBUPROFEN
     Indication: ARTHRALGIA
     Dosage: 200MG, ORALLY, LIQUIGELS, FOUR IN THE MORNING ALTOGETHER
     Route: 048
     Dates: start: 2015
  10. ADVIL [Suspect]
     Active Substance: IBUPROFEN
     Indication: MYALGIA
  11. WARFARIN [Concomitant]
     Active Substance: WARFARIN
     Indication: THROMBOSIS PROPHYLAXIS
     Dosage: 5 MG, UNK

REACTIONS (2)
  - Drug ineffective [Not Recovered/Not Resolved]
  - Extra dose administered [Unknown]

NARRATIVE: CASE EVENT DATE: 2015
